FAERS Safety Report 9238251 (Version 2)
Quarter: 2013Q2

REPORT INFORMATION
  Report Type: Spontaneous
  Country: US (occurrence: None)
  Receive Date: 20130415
  Receipt Date: 20130529
  Transmission Date: 20140414
  Serious: Yes (Hospitalization)
  Sender: FDA-Public Use
  Company Number: 2013US001408

PATIENT
  Age: 83 Year
  Sex: Male
  Weight: 73 kg

DRUGS (5)
  1. ICLUSIG [Suspect]
     Indication: CHRONIC MYELOID LEUKAEMIA
     Route: 048
     Dates: start: 201303, end: 20130328
  2. MAGNESIUM CITRATE (MAGNESIUM CITRATE) [Concomitant]
  3. MAGNESIUM (MAGNESIUM) [Concomitant]
  4. ALLOPURINOL [Concomitant]
  5. PRINIVIL (LISINOPRIL DIHYDRATE) [Concomitant]

REACTIONS (16)
  - Mental status changes [None]
  - White blood cell count increased [None]
  - Dyspnoea [None]
  - Nausea [None]
  - Vomiting [None]
  - Weight decreased [None]
  - Gastrointestinal pain [None]
  - Liver injury [None]
  - Hepatomegaly [None]
  - Transaminases increased [None]
  - Stomatitis [None]
  - Decreased appetite [None]
  - Constipation [None]
  - Abdominal pain upper [None]
  - Asthenia [None]
  - Abdominal pain [None]
